FAERS Safety Report 7202886-4 (Version None)
Quarter: 2010Q4

REPORT INFORMATION
  Report Type: 
  Country: None (occurrence: None)
  Receive Date: 20101229
  Receipt Date: 20101223
  Transmission Date: 20110411
  Serious: Yes (Hospitalization, Other)
  Sender: FDA-Public Use
  Company Number: ES-ABBOTT-10P-144-0683704-00

PATIENT
  Age: 58 Year
  Sex: Male
  Weight: 70 kg

DRUGS (6)
  1. HUMIRA [Suspect]
     Indication: RHEUMATOID ARTHRITIS
     Route: 058
     Dates: start: 20070901, end: 20101013
  2. LEFLUNOMIDA [Concomitant]
     Indication: RHEUMATOID ARTHRITIS
     Dates: start: 20070101
  3. METILPREDNISOLONA [Concomitant]
     Indication: RHEUMATOID ARTHRITIS
     Route: 048
  4. INDOMETACINA [Concomitant]
     Indication: RHEUMATOID ARTHRITIS
  5. OMEPRAZOLE [Concomitant]
     Indication: GASTRIC DISORDER
  6. OMEPRAZOLE [Concomitant]
     Indication: PROPHYLAXIS

REACTIONS (1)
  - VASCULITIS CEREBRAL [None]
